FAERS Safety Report 17047703 (Version 1)
Quarter: 2019Q4

REPORT INFORMATION
  Report Type: Spontaneous
  Country: HR (occurrence: HR)
  Receive Date: 20191119
  Receipt Date: 20191119
  Transmission Date: 20200122
  Serious: Yes (Other)
  Sender: FDA-Public Use
  Company Number: HR-PFIZER INC-2019493256

PATIENT
  Age: 14 Year
  Sex: Male

DRUGS (2)
  1. ZOLOFT [Suspect]
     Active Substance: SERTRALINE HYDROCHLORIDE
     Dosage: 20 TBL X 50 MG
     Route: 048
     Dates: start: 20190711, end: 20190711
  2. ARIPIPRAZOL [Suspect]
     Active Substance: ARIPIPRAZOLE
     Dosage: 20 TBL X 10MG
     Route: 048
     Dates: start: 20190711, end: 20190711

REACTIONS (4)
  - Intentional overdose [Unknown]
  - Muscular weakness [Unknown]
  - Vomiting [Unknown]
  - Suicide attempt [Unknown]

NARRATIVE: CASE EVENT DATE: 20190711
